FAERS Safety Report 17556892 (Version 1)
Quarter: 2020Q1

REPORT INFORMATION
  Report Type: Spontaneous
  Country: US (occurrence: US)
  Receive Date: 20200318
  Receipt Date: 20200318
  Transmission Date: 20200409
  Serious: Yes (Other)
  Sender: FDA-Public Use
  Company Number: US-ENDO PHARMACEUTICALS INC-2019-108822

PATIENT
  Age: 55 Year
  Sex: Male
  Weight: 63.49 kg

DRUGS (3)
  1. LISINOPRIL. [Concomitant]
     Active Substance: LISINOPRIL
     Indication: PRODUCT USED FOR UNKNOWN INDICATION
     Dosage: UNK UNKNOWN, UNKNOWN
     Route: 065
     Dates: start: 20190604
  2. XIAFLEX [Suspect]
     Active Substance: COLLAGENASE CLOSTRIDIUM HISTOLYTICUM
     Indication: DUPUYTREN^S CONTRACTURE
     Dosage: 0.58 MG, SINGLE
     Route: 026
     Dates: start: 20190716, end: 201907
  3. ETHYL CHLORIDE [Concomitant]
     Active Substance: ETHYL CHLORIDE
     Indication: PREMEDICATION
     Dosage: UNK UNKNOWN, UNKNOWN
     Route: 065

REACTIONS (6)
  - Dupuytren^s contracture [Unknown]
  - Skin laceration [Unknown]
  - Pain [Unknown]
  - Swelling [Unknown]
  - Disease progression [Unknown]
  - Ecchymosis [Unknown]

NARRATIVE: CASE EVENT DATE: 2019
